FAERS Safety Report 5499545-5 (Version None)
Quarter: 2007Q4

REPORT INFORMATION
  Report Type: 
  Country: None (occurrence: None)
  Receive Date: 20071026
  Receipt Date: 20071019
  Transmission Date: 20080405
  Serious: Yes (Hospitalization, Other)
  Sender: FDA-Public Use
  Company Number: HQWYE167124JUL03

PATIENT
  Sex: Female
  Weight: 66.74 kg

DRUGS (3)
  1. PREMPRO [Suspect]
     Indication: HORMONE REPLACEMENT THERAPY
     Dosage: UNSPECIFIED DOSE DAILY
     Route: 048
     Dates: start: 20000301, end: 20010201
  2. MPA [Suspect]
  3. PREMARIN [Suspect]

REACTIONS (5)
  - ANEURYSM [None]
  - CEREBROVASCULAR ACCIDENT [None]
  - EMBOLIC STROKE [None]
  - INTRACRANIAL ANEURYSM [None]
  - MIGRAINE WITH AURA [None]
